FAERS Safety Report 16236980 (Version 1)
Quarter: 2019Q2

REPORT INFORMATION
  Report Type: Report from Study
  Country: None (occurrence: US)
  Receive Date: 20190425
  Receipt Date: 20190425
  Transmission Date: 20190711
  Serious: Yes (Hospitalization, Other)
  Sender: FDA-Public Use
  Company Number: US-ABBVIE-19S-163-2752194-00

PATIENT
  Age: 56 Year
  Sex: Male

DRUGS (1)
  1. DEPAKOTE ER [Suspect]
     Active Substance: DIVALPROEX SODIUM
     Indication: PRODUCT USED FOR UNKNOWN INDICATION
     Route: 065

REACTIONS (17)
  - Blood disorder [Unknown]
  - Bipolar disorder [Unknown]
  - Hepatitis C [Unknown]
  - Deep vein thrombosis [Unknown]
  - Cholecystectomy [Unknown]
  - Osteoarthritis [Unknown]
  - Peripheral venous disease [Unknown]
  - Fibromyalgia [Unknown]
  - Lymphoedema [Unknown]
  - Back pain [Unknown]
  - Hypercoagulation [Unknown]
  - Hyperlipidaemia [Unknown]
  - Oedema peripheral [Unknown]
  - Depression [Unknown]
  - Antithrombin III deficiency [Unknown]
  - Essential hypertension [Unknown]
  - Gastrooesophageal reflux disease [Unknown]

NARRATIVE: CASE EVENT DATE: 20190405
